FAERS Safety Report 21988129 (Version 1)
Quarter: 2023Q1

REPORT INFORMATION
  Report Type: Spontaneous
  Country: US (occurrence: US)
  Receive Date: 20230214
  Receipt Date: 20230214
  Transmission Date: 20230418
  Serious: No
  Sender: FDA-Public Use
  Company Number: US-AUROBINDO-AUR-APL-2022-020052

PATIENT
  Age: 61 Year
  Sex: Female
  Weight: 36.2 kg

DRUGS (1)
  1. FAMOTIDINE [Suspect]
     Active Substance: FAMOTIDINE
     Indication: Gastrooesophageal reflux disease
     Dosage: 2 DOSAGE FORM, TWO TIMES A DAY (20 MILLIGRAM)
     Route: 065

REACTIONS (2)
  - Drug ineffective [Unknown]
  - Product dose omission issue [Unknown]
